FAERS Safety Report 20151363 (Version 1)
Quarter: 2021Q4

REPORT INFORMATION
  Report Type: Other
  Country: US (occurrence: None)
  Receive Date: 20211206
  Receipt Date: 20211206
  Transmission Date: 20220303
  Serious: No
  Sender: FDA-Public Use
  Company Number: US-ROCHE-2972159

PATIENT
  Sex: Female

DRUGS (1)
  1. OCREVUS [Suspect]
     Active Substance: OCRELIZUMAB
     Indication: Multiple sclerosis
     Dosage: 300MG INTRAVENOUSLY ON DAYS 1 AND 15
     Route: 042
     Dates: start: 20210407

REACTIONS (1)
  - Oral herpes [Not Recovered/Not Resolved]
